FAERS Safety Report 15431624 (Version 1)
Quarter: 2018Q3

REPORT INFORMATION
  Report Type: Spontaneous
  Country: NZ (occurrence: NZ)
  Receive Date: 20180926
  Receipt Date: 20180926
  Transmission Date: 20181010
  Serious: Yes (Other)
  Sender: FDA-Public Use
  Company Number: NZ-BAYER-2018-178322

PATIENT
  Age: 72 Year
  Sex: Male

DRUGS (10)
  1. LEVETIRACETAM. [Concomitant]
     Active Substance: LEVETIRACETAM
     Dosage: UNK
  2. ACETYLSALICYLIC ACID({=100 MG) [Suspect]
     Active Substance: ASPIRIN
     Dosage: UNK
  3. CLOPIDOGREL [Suspect]
     Active Substance: CLOPIDOGREL BISULFATE
  4. OMEPRAZOLE. [Concomitant]
     Active Substance: OMEPRAZOLE
     Dosage: UNK
  5. METOPROLOL. [Concomitant]
     Active Substance: METOPROLOL
     Dosage: UNK
  6. COTRIMOXAZOLE [Concomitant]
     Active Substance: SULFAMETHOXAZOLE\TRIMETHOPRIM
     Dosage: UNK
  7. TACROLIMUS. [Concomitant]
     Active Substance: TACROLIMUS
     Dosage: UNK
  8. INSULIN [Concomitant]
     Active Substance: INSULIN NOS
     Dosage: UNK
  9. MULTIVITAMIN [Concomitant]
     Active Substance: VITAMINS
     Indication: NUTRITIONAL SUPPLEMENTATION
     Dosage: UNK
  10. PREDNISONE. [Concomitant]
     Active Substance: PREDNISONE
     Dosage: UNK

REACTIONS (3)
  - Labelled drug-drug interaction medication error [None]
  - Nephritis haemorrhagic [None]
  - Drug administration error [None]
